FAERS Safety Report 22064673 (Version 1)
Quarter: 2023Q1

REPORT INFORMATION
  Report Type: Spontaneous
  Country: US (occurrence: None)
  Receive Date: 20230305
  Receipt Date: 20230305
  Transmission Date: 20230418
  Serious: Yes (Hospitalization, Other)
  Sender: FDA-Public Use
  Company Number: None

PATIENT
  Age: 65 Year
  Sex: Female
  Weight: 75.6 kg

DRUGS (1)
  1. RECLAST [Suspect]
     Active Substance: ZOLEDRONIC ACID
     Indication: Osteoporosis
     Dosage: OTHER QUANTITY : 1 INFUSION;?OTHER FREQUENCY : ANNUALLY;?
     Route: 042
     Dates: start: 20230218, end: 20230218

REACTIONS (10)
  - Back pain [None]
  - Sleep disorder [None]
  - Hypokinesia [None]
  - Vomiting [None]
  - Vomiting [None]
  - Hyperhidrosis [None]
  - Syncope [None]
  - Diarrhoea [None]
  - Vomiting [None]
  - Nausea [None]

NARRATIVE: CASE EVENT DATE: 20230218
